APPROVED DRUG PRODUCT: CIPROFLOXACIN HYDROCHLORIDE
Active Ingredient: CIPROFLOXACIN HYDROCHLORIDE
Strength: EQ 0.3% BASE
Dosage Form/Route: SOLUTION/DROPS;OPHTHALMIC
Application: A078598 | Product #001
Applicant: AMRING PHARMACEUTICALS INC
Approved: Jan 16, 2008 | RLD: No | RS: No | Type: DISCN